FAERS Safety Report 9168011 (Version 1)
Quarter: 2013Q1

REPORT INFORMATION
  Report Type: Spontaneous
  Country: IT (occurrence: None)
  Receive Date: 20130307
  Receipt Date: 20130307
  Transmission Date: 20140127
  Serious: Yes (Other)
  Sender: FDA-Public Use
  Company Number: PC 185

PATIENT
  Age: 18 Year
  Sex: Male

DRUGS (4)
  1. RANITIDINE [Suspect]
     Indication: INTRAOPERATIVE CARE
     Route: 042
  2. ONDANSETRON [Concomitant]
  3. DEXAMETHASONE [Concomitant]
  4. TRAMADOL [Concomitant]

REACTIONS (5)
  - Heart rate increased [None]
  - Hypotension [None]
  - Breath sounds abnormal [None]
  - Anaphylactic reaction [None]
  - Procedural complication [None]
